FAERS Safety Report 4615152-8 (Version None)
Quarter: 2005Q1

REPORT INFORMATION
  Report Type: 
  Country: None (occurrence: None)
  Receive Date: 20050322
  Receipt Date: 20040811
  Transmission Date: 20050727
  Serious: Yes (Hospitalization)
  Sender: FDA-Public Use
  Company Number: FR-SANOFI-SYNTHELABO-A02200402

PATIENT
  Age: 13 Year
  Sex: Male
  Weight: 60 kg

DRUGS (14)
  1. ZANTAC [Suspect]
     Indication: STRESS ULCER
     Route: 042
     Dates: start: 20040704
  2. FRAXIPARINE [Suspect]
     Route: 058
     Dates: start: 20040704, end: 20040101
  3. CLAMOXYL [Suspect]
     Route: 065
     Dates: start: 20040704, end: 20040708
  4. NIMBEX [Suspect]
     Route: 042
     Dates: start: 20040707, end: 20040730
  5. TETANUS VACCINE [Suspect]
     Dosage: 1 PER DAY
     Route: 058
     Dates: start: 20040702, end: 20040702
  6. TRACRIUM [Suspect]
     Route: 065
     Dates: start: 20040704, end: 20040707
  7. DIPRIVAN [Suspect]
     Route: 065
     Dates: start: 20040704, end: 20040701
  8. MIDAZOLAM HCL [Suspect]
     Route: 065
     Dates: start: 20040701, end: 20040701
  9. IMMUNE GLOBULIN (HUMAN) [Suspect]
     Dosage: 1 PER DAY
     Route: 030
     Dates: start: 20040702, end: 20040702
  10. MYOLASTAN [Suspect]
     Route: 065
     Dates: start: 20040703, end: 20040704
  11. NUBAIN [Suspect]
     Dosage: 3 PER DAY
     Dates: start: 20040703, end: 20040704
  12. SUFENTA [Suspect]
     Route: 065
     Dates: start: 20040704, end: 20040809
  13. SURGAM [Suspect]
     Route: 048
     Dates: start: 20040702, end: 20040703
  14. VALIUM [Suspect]
     Dosage: 5MG PER DAY
     Route: 065
     Dates: start: 20040703, end: 20040703

REACTIONS (13)
  - AUTONOMIC NERVOUS SYSTEM IMBALANCE [None]
  - CATHETER RELATED INFECTION [None]
  - DRUG WITHDRAWAL SYNDROME [None]
  - GENERAL PHYSICAL HEALTH DETERIORATION [None]
  - GLUCOSE TOLERANCE IMPAIRED [None]
  - HAEMATURIA [None]
  - HYPERTENSION [None]
  - LEUKOCYTURIA [None]
  - LUNG DISORDER [None]
  - RASH GENERALISED [None]
  - STAPHYLOCOCCAL INFECTION [None]
  - TUBULOINTERSTITIAL NEPHRITIS [None]
  - VENA CAVA THROMBOSIS [None]
